FAERS Safety Report 16931422 (Version 1)
Quarter: 2019Q4

REPORT INFORMATION
  Report Type: Spontaneous
  Country: JP (occurrence: JP)
  Receive Date: 20191017
  Receipt Date: 20191017
  Transmission Date: 20200122
  Serious: Yes (Other)
  Sender: FDA-Public Use
  Company Number: JP-UCBSA-2019043303

PATIENT

DRUGS (1)
  1. CIMZIA [Suspect]
     Active Substance: CERTOLIZUMAB PEGOL
     Indication: RHEUMATOID ARTHRITIS
     Route: 058

REACTIONS (5)
  - Atypical mycobacterial infection [Unknown]
  - Lymphoproliferative disorder [Unknown]
  - Squamous cell carcinoma of lung [Unknown]
  - Pneumonia bacterial [Unknown]
  - Pyelonephritis [Unknown]
